FAERS Safety Report 9055260 (Version 1)
Quarter: 2013Q1

REPORT INFORMATION
  Report Type: Spontaneous
  Country: US (occurrence: US)
  Receive Date: 20130206
  Receipt Date: 20130206
  Transmission Date: 20140127
  Serious: Yes (Other)
  Sender: FDA-Public Use
  Company Number: US-PFIZER INC-2012120131

PATIENT
  Age: 55 Year
  Sex: Male

DRUGS (9)
  1. CELEBREX [Suspect]
     Indication: ANTIINFLAMMATORY THERAPY
     Dosage: 200 MG, 2X/DAY (1 CAP TWICE DAILY; 1-BREAKFAST/1-BEDTIME)
  2. NORVASC [Suspect]
     Indication: BLOOD PRESSURE
     Dosage: 10 MG, 1X/DAY (1 TAB DAILY BREAKFAST)
  3. LIPITOR [Concomitant]
     Indication: BLOOD CHOLESTEROL
     Dosage: 20 MG, 1X/DAY (1 TAB DAILY, BEDTIME)
  4. CLONIDINE HYDROCHLORIDE [Concomitant]
     Indication: BLOOD PRESSURE
     Dosage: 0.1 MG, (4 TAB DAILY; 2-BREAKFAST/2-BEDTIME)
  5. DIOVAN HCT [Concomitant]
     Indication: BLOOD PRESSURE
     Dosage: 160-12.5 MG (2 TABS DAILY; 1-BREAKFAST/1-BEDTIME)
  6. METFORMIN [Concomitant]
     Indication: BLOOD GLUCOSE ABNORMAL
     Dosage: 1000 MG, (2 TABS DAILY; 1-BREAKFAST/1-BEDTIME)
  7. GLYBURIDE [Concomitant]
     Indication: BLOOD GLUCOSE ABNORMAL
     Dosage: 5 MG, 1X/DAY (1 TAB DAILY; BREAKFAST)
  8. CENTRUM [Concomitant]
     Dosage: 1 TAB DAILY/ BEDTIME
  9. CINNAMON [Concomitant]
     Dosage: 1000 MG, (2 CAPS DAILY/BEDTIME)

REACTIONS (2)
  - Accident at work [Unknown]
  - Spinal disorder [Unknown]
